FAERS Safety Report 8299322-6 (Version None)
Quarter: 2012Q2

REPORT INFORMATION
  Report Type: 
  Country: None (occurrence: None)
  Receive Date: 20120419
  Receipt Date: 20120410
  Transmission Date: 20120825
  Serious: Yes (Other)
  Sender: FDA-Public Use
  Company Number: JP-VALEANT-2012VX001666

PATIENT
  Age: 79 Year
  Sex: Male

DRUGS (11)
  1. FLUOROURACIL [Suspect]
     Route: 065
  2. FLUOROURACIL [Suspect]
     Dosage: DOSE UNIT:600
     Route: 065
  3. CISPLATIN [Suspect]
     Route: 065
  4. TAXOTERE [Suspect]
     Dosage: DOSE UNIT:60
     Route: 065
  5. FLUOROURACIL [Suspect]
     Route: 065
  6. FLUOROURACIL [Suspect]
     Dosage: DOSE UNIT:600
     Route: 065
  7. CISPLATIN [Suspect]
     Dosage: DOSE UNIT:50
     Route: 065
  8. CISPLATIN [Suspect]
     Dosage: DOSE UNIT:60
     Route: 065
  9. CISPLATIN [Suspect]
     Dosage: DOSE UNIT:60
     Route: 065
  10. TAXOTERE [Suspect]
     Route: 065
  11. TAXOTERE [Suspect]
     Dosage: DOSE UNIT:60
     Route: 065

REACTIONS (3)
  - LEUKOPENIA [None]
  - STOMATITIS [None]
  - RENAL IMPAIRMENT [None]
